FAERS Safety Report 26148131 (Version 2)
Quarter: 2025Q4

REPORT INFORMATION
  Report Type: Spontaneous
  Country: EU (occurrence: EU)
  Receive Date: 20251212
  Receipt Date: 20251217
  Transmission Date: 20260118
  Serious: Yes (Other)
  Sender: SYNDAX
  Company Number: EU-SYNDAX PHARMACEUTICALS, INC.-2025PL000968

PATIENT
  Age: 14 Month
  Sex: Female

DRUGS (1)
  1. REVUFORJ [Suspect]
     Active Substance: REVUMENIB CITRATE
     Indication: Acute myeloid leukaemia refractory
     Dosage: 50 MILLIGRAM, BID
     Route: 048
     Dates: start: 20251101

REACTIONS (4)
  - Bone marrow failure [Unknown]
  - Agranulocytosis [Unknown]
  - Transfusion related complication [Unknown]
  - Infection [Unknown]
